FAERS Safety Report 25575013 (Version 2)
Quarter: 2025Q3

REPORT INFORMATION
  Report Type: Spontaneous
  Country: EU (occurrence: EU)
  Receive Date: 20250718
  Receipt Date: 20250825
  Transmission Date: 20251021
  Serious: Yes (Life-Threatening, Hospitalization, Other)
  Sender: JOHNSON AND JOHNSON
  Company Number: EU-JNJFOC-20250717417

PATIENT
  Age: 85 Year
  Sex: Male
  Weight: 65 kg

DRUGS (8)
  1. AMIVANTAMAB [Suspect]
     Active Substance: AMIVANTAMAB
     Indication: Lung adenocarcinoma
     Route: 058
     Dates: start: 20250617, end: 20250718
  2. LAZERTINIB [Suspect]
     Active Substance: LAZERTINIB
     Indication: Lung adenocarcinoma
     Route: 048
     Dates: start: 20250617, end: 20250718
  3. DUROTIV MSR TBL [Concomitant]
     Indication: Premedication
  4. CEREBOKAN FTBL [Concomitant]
     Indication: Premedication
  5. XARELTO FTBL [Concomitant]
     Indication: Premedication
  6. MINOSTAD KPS [Concomitant]
     Indication: Premedication
  7. DALACIN LOT [Concomitant]
     Indication: Premedication
     Dosage: TO THE SCALP
  8. HYALURONIDASE (HUMAN RECOMBINANT) [Suspect]
     Active Substance: HYALURONIDASE (HUMAN RECOMBINANT)

REACTIONS (1)
  - Small intestinal perforation [Recovered/Resolved]

NARRATIVE: CASE EVENT DATE: 20250708
